FAERS Safety Report 21569766 (Version 2)
Quarter: 2022Q4

REPORT INFORMATION
  Report Type: Spontaneous
  Country: JP (occurrence: JP)
  Receive Date: 20221109
  Receipt Date: 20221121
  Transmission Date: 20230112
  Serious: Yes (Death, Other)
  Sender: FDA-Public Use
  Company Number: JP-CELGENE-JPN-20190900548

PATIENT
  Age: 71 Year
  Sex: Male
  Weight: 61.3 kg

DRUGS (39)
  1. CARBOPLATIN [Suspect]
     Active Substance: CARBOPLATIN
     Indication: Lung squamous cell carcinoma metastatic
     Dosage: 587 MILLIGRAM
     Route: 041
     Dates: start: 20190628
  2. CARBOPLATIN [Suspect]
     Active Substance: CARBOPLATIN
     Dosage: 470 MILLIGRAM
     Route: 041
     Dates: start: 20190726, end: 20190726
  3. ABRAXANE [Suspect]
     Active Substance: PACLITAXEL
     Indication: Lung squamous cell carcinoma metastatic
     Route: 041
     Dates: start: 20190628
  4. ABRAXANE [Suspect]
     Active Substance: PACLITAXEL
     Route: 041
     Dates: start: 20190726, end: 20190726
  5. KEYTRUDA [Suspect]
     Active Substance: PEMBROLIZUMAB
     Indication: Lung squamous cell carcinoma metastatic
     Dosage: 200 MILLIGRAM
     Route: 041
     Dates: start: 20190628, end: 20190726
  6. ZOSYN [Suspect]
     Active Substance: PIPERACILLIN SODIUM\TAZOBACTAM SODIUM
     Indication: Pneumonia
     Route: 041
     Dates: start: 20190809, end: 20190819
  7. ZOSYN [Suspect]
     Active Substance: PIPERACILLIN SODIUM\TAZOBACTAM SODIUM
     Indication: Chronic obstructive pulmonary disease
  8. ACETAMINOPHEN [Suspect]
     Active Substance: ACETAMINOPHEN
     Indication: Product used for unknown indication
     Dosage: 4500 MILLIGRAM
     Route: 065
     Dates: start: 20190610, end: 20190824
  9. ACETAMINOPHEN [Suspect]
     Active Substance: ACETAMINOPHEN
     Dosage: 20 MILLIGRAM
     Route: 048
     Dates: start: 20190810, end: 20190819
  10. ACETAMINOPHEN [Suspect]
     Active Substance: ACETAMINOPHEN
     Dosage: 60 MILLIGRAM
     Route: 065
     Dates: start: 20190823, end: 20190830
  11. ACETAMINOPHEN [Suspect]
     Active Substance: ACETAMINOPHEN
     Dosage: 40 MILLIGRAM
     Route: 065
     Dates: start: 20190831, end: 20190901
  12. ACETAMINOPHEN [Suspect]
     Active Substance: ACETAMINOPHEN
     Dosage: FREQUENCY TEXT: NOT PROVIDED?587 MILLIGRAM
     Route: 041
     Dates: start: 20190628
  13. ACETAMINOPHEN [Suspect]
     Active Substance: ACETAMINOPHEN
     Dosage: FREQUENCY TEXT: NOT PROVIDED?470 MILLIGRAM
     Route: 041
     Dates: start: 20190726, end: 20190726
  14. ACETAMINOPHEN [Suspect]
     Active Substance: ACETAMINOPHEN
     Dosage: FREQUENCY TEXT: NOT PROVIDED?4500 MILLIGRAM
     Route: 048
     Dates: start: 20190610, end: 20190824
  15. PREDONINE [Concomitant]
     Active Substance: PREDNISOLONE
     Indication: Adverse event
     Dosage: 30 MILLIGRAM
     Route: 048
     Dates: start: 20190802, end: 20190809
  16. PREDONINE [Concomitant]
     Active Substance: PREDNISOLONE
     Dosage: 20 MILLIGRAM
     Route: 048
     Dates: start: 20190810, end: 20190819
  17. PREDONINE [Concomitant]
     Active Substance: PREDNISOLONE
     Dosage: 60 MILLIGRAM
     Route: 065
     Dates: start: 20190823, end: 20190830
  18. PREDONINE [Concomitant]
     Active Substance: PREDNISOLONE
     Dosage: 40 MILLIGRAM
     Route: 065
     Dates: start: 20190831, end: 20190901
  19. SULFAMETHOXAZOLE\TRIMETHOPRIM [Concomitant]
     Active Substance: SULFAMETHOXAZOLE\TRIMETHOPRIM
     Indication: Antifungal prophylaxis
     Route: 048
     Dates: start: 20190802
  20. TRANEXAMIC ACID [Concomitant]
     Active Substance: TRANEXAMIC ACID
     Indication: Product used for unknown indication
     Dosage: 9 DOSAGE FORMS
     Route: 048
     Dates: start: 20190604, end: 20190824
  21. CARBOCYSTEINE [Concomitant]
     Active Substance: CARBOCYSTEINE
     Indication: Product used for unknown indication
     Dosage: 18 DOSAGE FORMS
     Route: 048
     Dates: start: 20190604, end: 20190824
  22. LOXOPROFEN SODIUM [Concomitant]
     Active Substance: LOXOPROFEN SODIUM
     Indication: Product used for unknown indication
     Dosage: 9 DOSAGE FORMS
     Route: 048
     Dates: start: 20190610, end: 20190801
  23. REBAMIPIDE [Concomitant]
     Active Substance: REBAMIPIDE
     Indication: Product used for unknown indication
     Dosage: 9 DOSAGE FORMS
     Route: 048
     Dates: start: 20190610, end: 20190824
  24. CODEINE PHOSPHATE [Concomitant]
     Active Substance: CODEINE PHOSPHATE
     Indication: Product used for unknown indication
     Route: 048
     Dates: start: 20190612, end: 20190824
  25. FUROSEMIDE [Concomitant]
     Active Substance: FUROSEMIDE
     Indication: Product used for unknown indication
     Dosage: 9 DOSAGE FORMS
     Route: 048
     Dates: start: 20190612, end: 20190802
  26. TRAMADOL [Concomitant]
     Active Substance: TRAMADOL
     Indication: Product used for unknown indication
     Dosage: 1 DOSAGE FORMS
     Route: 048
     Dates: start: 20190612, end: 20190612
  27. OXYCONTIN [Concomitant]
     Active Substance: OXYCODONE HYDROCHLORIDE
     Indication: Product used for unknown indication
     Dosage: 4 DOSAGE FORMS
     Route: 048
     Dates: start: 20190613, end: 20190824
  28. MAGNESIUM OXIDE [Concomitant]
     Active Substance: MAGNESIUM OXIDE
     Indication: Product used for unknown indication
     Dosage: 9 DOSAGE FORMS
     Route: 048
     Dates: start: 20190613, end: 20190824
  29. SPIRIVA [Concomitant]
     Active Substance: TIOTROPIUM BROMIDE MONOHYDRATE
     Indication: Product used for unknown indication
     Route: 055
     Dates: start: 20190627, end: 20190824
  30. EMEND [Concomitant]
     Active Substance: APREPITANT
     Indication: Product used for unknown indication
     Dosage: 125 MILLIGRAM
     Route: 048
     Dates: start: 20190628, end: 20190628
  31. EMEND [Concomitant]
     Active Substance: APREPITANT
     Dosage: 80 MILLIGRAM
     Route: 048
     Dates: start: 20190629, end: 20190629
  32. EMEND [Concomitant]
     Active Substance: APREPITANT
     Dosage: 125 MILLIGRAM
     Route: 048
     Dates: start: 20190726, end: 20190726
  33. EMEND [Concomitant]
     Active Substance: APREPITANT
     Dosage: 80 MILLIGRAM
     Route: 048
     Dates: start: 20190727, end: 20190728
  34. SYMPROIC [Concomitant]
     Active Substance: NALDEMEDINE
     Indication: Product used for unknown indication
     Dosage: 1 DOSAGE FORMS
     Route: 061
     Dates: start: 20190705, end: 20190710
  35. RABEPRAZOLE [Concomitant]
     Active Substance: RABEPRAZOLE
     Indication: Product used for unknown indication
     Dosage: 4 DOSAGE FORMS
     Route: 061
     Dates: start: 20190708, end: 20190824
  36. DECADRON [Concomitant]
     Active Substance: DEXAMETHASONE
     Indication: Product used for unknown indication
     Dosage: 8 DOSAGE FORMS
     Route: 048
     Dates: start: 20190711, end: 20190802
  37. URSODIOL [Concomitant]
     Active Substance: URSODIOL
     Indication: Product used for unknown indication
     Dosage: 9 DOSAGE FORMS
     Route: 048
     Dates: start: 20190801, end: 20190824
  38. URSODIOL [Concomitant]
     Active Substance: URSODIOL
     Dosage: 9 DOSAGE FORMS
     Route: 048
     Dates: start: 20190801, end: 20190824
  39. URSODIOL [Concomitant]
     Active Substance: URSODIOL
     Dosage: 9 DOSAGE FORMS
     Route: 048
     Dates: start: 20190801, end: 20190824

REACTIONS (5)
  - Disease progression [Fatal]
  - Hepatic function abnormal [Recovered/Resolved]
  - Hyponatraemia [Unknown]
  - Nausea [Recovered/Resolved]
  - Drug eruption [Recovered/Resolved]

NARRATIVE: CASE EVENT DATE: 20190704
